FAERS Safety Report 13681996 (Version 2)
Quarter: 2018Q3

REPORT INFORMATION
  Report Type: Spontaneous
  Country: US (occurrence: US)
  Receive Date: 20170623
  Receipt Date: 20180724
  Transmission Date: 20181010
  Serious: No
  Sender: FDA-Public Use
  Company Number: US-BAUSCH-BL-2017-010824

PATIENT
  Age: 62 Year
  Sex: Female

DRUGS (1)
  1. JUBLIA [Suspect]
     Active Substance: EFINACONAZOLE
     Indication: ONYCHOMYCOSIS
     Route: 061
     Dates: start: 20170419

REACTIONS (3)
  - No adverse event [Unknown]
  - Product label issue [Unknown]
  - Off label use [Unknown]

NARRATIVE: CASE EVENT DATE: 20170419
